FAERS Safety Report 14281526 (Version 2)
Quarter: 2018Q1

REPORT INFORMATION
  Report Type: Spontaneous
  Country: GB (occurrence: GB)
  Receive Date: 20171213
  Receipt Date: 20180109
  Transmission Date: 20180508
  Serious: Yes (Disabling)
  Sender: FDA-Public Use
  Company Number: GB-009507513-1711GBR004609

PATIENT
  Age: 64 Year
  Sex: Male
  Weight: 62.7 kg

DRUGS (2)
  1. PEMBROLIZUMAB. [Suspect]
     Active Substance: PEMBROLIZUMAB
     Indication: SQUAMOUS CELL CARCINOMA OF LUNG
     Dosage: 125 MG, Q3W
     Dates: start: 20170629
  2. THYROXINE I 125 [Concomitant]
     Indication: HYPOTHYROIDISM
     Dosage: 125 MG, QD
     Route: 048
     Dates: start: 20170928

REACTIONS (1)
  - Arthropathy [Recovering/Resolving]

NARRATIVE: CASE EVENT DATE: 20171019
